FAERS Safety Report 6809333-2 (Version None)
Quarter: 2010Q2

REPORT INFORMATION
  Report Type: 
  Country: None (occurrence: None)
  Receive Date: 20100630
  Receipt Date: 20100618
  Transmission Date: 20101027
  Serious: No
  Sender: FDA-Public Use
  Company Number: US-ELI_LILLY_AND_COMPANY-US201003003776

PATIENT
  Sex: Female
  Weight: 75.737 kg

DRUGS (8)
  1. CYMBALTA [Suspect]
     Indication: DEPRESSION
     Dosage: 60 MG, DAILY (1/D)
     Route: 048
     Dates: start: 20051101, end: 20090801
  2. CYMBALTA [Suspect]
     Dosage: 60 MG, DAILY (1/D)
     Route: 048
  3. DURAGESIC-100 [Concomitant]
     Indication: BACK PAIN
     Dosage: 50 UG, UNK
     Route: 062
     Dates: start: 20070101
  4. CODEINE SULFATE [Concomitant]
     Indication: BACK PAIN
  5. TOPAMAX [Concomitant]
     Indication: BIPOLAR DISORDER
     Dosage: 25 MG, UNK
     Dates: start: 20070101
  6. LIPITOR [Concomitant]
     Indication: HYPERLIPIDAEMIA
     Dosage: 20 MG, UNK
     Dates: start: 20070101
  7. METFORMIN HCL [Concomitant]
  8. OXYCODONE HCL [Concomitant]
     Indication: BACK PAIN
     Dosage: 5 MG, UNK

REACTIONS (11)
  - ALANINE AMINOTRANSFERASE INCREASED [None]
  - ASPARTATE AMINOTRANSFERASE INCREASED [None]
  - BLOOD GLUCOSE INCREASED [None]
  - DISORIENTATION [None]
  - DIZZINESS [None]
  - DRUG WITHDRAWAL SYNDROME [None]
  - FEELING ABNORMAL [None]
  - HEADACHE [None]
  - MALAISE [None]
  - PARAESTHESIA [None]
  - STRESS [None]
